FAERS Safety Report 6276283-2 (Version None)
Quarter: 2009Q3

REPORT INFORMATION
  Report Type: 
  Country: None (occurrence: None)
  Receive Date: 20090720
  Receipt Date: 20090706
  Transmission Date: 20100115
  Serious: Yes (Hospitalization)
  Sender: FDA-Public Use
  Company Number: JPI-P-007889

PATIENT
  Age: 75 Year
  Sex: Male

DRUGS (3)
  1. XYREM [Suspect]
     Indication: CATAPLEXY
     Dosage: SEE IMAGE
     Route: 048
     Dates: start: 20090227, end: 20090702
  2. XYREM [Suspect]
     Indication: CATAPLEXY
     Dosage: SEE IMAGE
     Route: 048
     Dates: start: 20090703
  3. ENALAPRIL MALEATE [Concomitant]

REACTIONS (4)
  - CONFUSIONAL STATE [None]
  - RESPIRATORY TRACT INFECTION [None]
  - SUPERINFECTION [None]
  - URINARY INCONTINENCE [None]
